FAERS Safety Report 7618534-5 (Version None)
Quarter: 2011Q3

REPORT INFORMATION
  Report Type: 
  Country: None (occurrence: None)
  Receive Date: 20110718
  Receipt Date: 20110708
  Transmission Date: 20111222
  Serious: Yes (Hospitalization, Other)
  Sender: FDA-Public Use
  Company Number: US-BAYER-2011-037170

PATIENT
  Age: 21 Year
  Sex: Female
  Weight: 95 kg

DRUGS (3)
  1. YAZ [Suspect]
     Indication: CONTRACEPTION
     Dosage: UNK
     Dates: start: 20081101, end: 20090101
  2. YAZ [Suspect]
     Indication: PREMENSTRUAL SYNDROME
  3. YAZ [Suspect]
     Indication: MENSTRUATION IRREGULAR

REACTIONS (7)
  - DYSPNOEA [None]
  - EMOTIONAL DISTRESS [None]
  - PAIN [None]
  - FEAR OF DEATH [None]
  - PULMONARY EMBOLISM [None]
  - NERVOUSNESS [None]
  - DEPRESSION [None]
